FAERS Safety Report 5704791-9 (Version None)
Quarter: 2008Q2

REPORT INFORMATION
  Report Type: 
  Country: None (occurrence: None)
  Receive Date: 20080414
  Receipt Date: 20080402
  Transmission Date: 20081010
  Serious: Yes (Other)
  Sender: FDA-Public Use
  Company Number: AU-PFIZER INC-2008016660

PATIENT
  Sex: Female
  Weight: 89.9 kg

DRUGS (8)
  1. CHAMPIX [Suspect]
  2. CODEINE SUL TAB [Concomitant]
  3. DIAMICRON MR [Concomitant]
  4. MURELAX [Concomitant]
  5. SPIRIVA [Concomitant]
  6. SYMBICORT [Concomitant]
  7. TRITACE [Concomitant]
  8. VENTOLIN [Concomitant]

REACTIONS (17)
  - ABDOMINAL DISTENSION [None]
  - DECREASED APPETITE [None]
  - DEPRESSED MOOD [None]
  - DIARRHOEA [None]
  - DRY MOUTH [None]
  - DYSGEUSIA [None]
  - FATIGUE [None]
  - FEELING HOT [None]
  - HEADACHE [None]
  - HYPERHIDROSIS [None]
  - HYPERTENSION [None]
  - MALAISE [None]
  - NAUSEA [None]
  - POLLAKIURIA [None]
  - SKIN DISCOLOURATION [None]
  - SLEEP DISORDER [None]
  - VOMITING [None]
